FAERS Safety Report 10163598 (Version 1)
Quarter: 2014Q2

REPORT INFORMATION
  Report Type: Spontaneous
  Country: US (occurrence: US)
  Receive Date: 20140509
  Receipt Date: 20140509
  Transmission Date: 20141212
  Serious: No
  Sender: FDA-Public Use
  Company Number: US-BAUSCH-BL-2014-001486

PATIENT
  Age: 57 Year
  Sex: Female

DRUGS (1)
  1. OFLOXACIN OTIC SOLUTION 0.3% [Suspect]
     Indication: POSTOPERATIVE CARE
     Dosage: 1 DROP FOUR TIMES DAILY
     Route: 047

REACTIONS (2)
  - Vision blurred [Unknown]
  - Dry eye [Unknown]
